FAERS Safety Report 26218305 (Version 1)
Quarter: 2025Q4

REPORT INFORMATION
  Report Type: Spontaneous
  Country: US (occurrence: US)
  Receive Date: 20251231
  Receipt Date: 20251231
  Transmission Date: 20260117
  Serious: No
  Sender: MALLINCKRODT
  Company Number: US-MALLINCKRODT-MNK202508345

PATIENT
  Age: 58 Year
  Sex: Female
  Weight: 199 kg

DRUGS (2)
  1. CORTICOTROPIN [Suspect]
     Active Substance: CORTICOTROPIN
     Indication: Systemic lupus erythematosus
     Route: 058
     Dates: start: 202311
  2. BENLYSTA [Suspect]
     Active Substance: BELIMUMAB
     Indication: Product used for unknown indication
     Dosage: UNKNOWN

REACTIONS (5)
  - Memory impairment [Unknown]
  - Dizziness [Unknown]
  - Balance disorder [Unknown]
  - Tinnitus [Unknown]
  - Pain [Unknown]
